FAERS Safety Report 24155815 (Version 1)
Quarter: 2024Q3

REPORT INFORMATION
  Report Type: Spontaneous
  Country: RO (occurrence: RO)
  Receive Date: 20240731
  Receipt Date: 20240731
  Transmission Date: 20241017
  Serious: Yes (Other)
  Sender: RANBAXY
  Company Number: RO-SUN PHARMACEUTICAL INDUSTRIES LTD-2024RR-460023

PATIENT
  Age: 24 Year
  Sex: Female

DRUGS (5)
  1. SERTRALINE [Suspect]
     Active Substance: SERTRALINE HYDROCHLORIDE
     Indication: Obsessive-compulsive disorder
     Dosage: 25 MILLIGRAM
     Route: 065
  2. SERTRALINE [Suspect]
     Active Substance: SERTRALINE HYDROCHLORIDE
     Dosage: 200 MILLIGRAM
     Route: 065
  3. RISPERIDONE [Suspect]
     Active Substance: RISPERIDONE
     Indication: Obsessive-compulsive disorder
     Dosage: 0.25 MILLIGRAM/DAY
     Route: 065
  4. RISPERIDONE [Suspect]
     Active Substance: RISPERIDONE
     Dosage: 0.75 MILLIGRAM/DAY
     Route: 065
  5. CARIPRAZINE [Concomitant]
     Active Substance: CARIPRAZINE
     Indication: Obsessive-compulsive disorder
     Dosage: 3 MILLIGRAM/DAY
     Route: 065

REACTIONS (3)
  - Nausea [Recovering/Resolving]
  - Sedation [Recovering/Resolving]
  - Blood prolactin increased [Recovering/Resolving]
